FAERS Safety Report 4976400-8 (Version None)
Quarter: 2006Q2

REPORT INFORMATION
  Report Type: 
  Country: None (occurrence: None)
  Receive Date: 20060412
  Receipt Date: 20060330
  Transmission Date: 20061013
  Serious: Yes (Death)
  Sender: FDA-Public Use
  Company Number: GBWYE526803APR06

PATIENT
  Age: 34 Year
  Sex: Female

DRUGS (1)
  1. EFFEXOR [Suspect]

REACTIONS (3)
  - ALCOHOL INTERACTION [None]
  - BLOOD ALCOHOL INCREASED [None]
  - DRUG INTERACTION [None]
